FAERS Safety Report 5070663-9 (Version None)
Quarter: 2006Q3

REPORT INFORMATION
  Report Type: 
  Country: None (occurrence: None)
  Receive Date: 20060804
  Receipt Date: 20050906
  Transmission Date: 20061208
  Serious: No
  Sender: FDA-Public Use
  Company Number: US-GLAXOSMITHKLINE-A0573019A

PATIENT
  Sex: Female

DRUGS (1)
  1. EQUATE NICOTINE GUM 4MG [Suspect]

REACTIONS (2)
  - CHOKING SENSATION [None]
  - THROAT IRRITATION [None]
